FAERS Safety Report 7589480-0 (Version None)
Quarter: 2011Q3

REPORT INFORMATION
  Report Type: 
  Country: None (occurrence: None)
  Receive Date: 20110705
  Receipt Date: 20110628
  Transmission Date: 20111222
  Serious: Yes (Hospitalization)
  Sender: FDA-Public Use
  Company Number: CA-ABBOTT-11P-028-0835571-00

PATIENT
  Age: 25 Year
  Sex: Female

DRUGS (4)
  1. ELAVIL [Suspect]
     Indication: PRODUCT USED FOR UNKNOWN INDICATION
  2. STOOL SOFTENERS [Concomitant]
     Indication: PRODUCT USED FOR UNKNOWN INDICATION
  3. MAVIK [Suspect]
     Indication: BLOOD PRESSURE ABNORMAL
     Route: 048
     Dates: start: 20110401
  4. CIPROLAX [Suspect]
     Indication: PRODUCT USED FOR UNKNOWN INDICATION

REACTIONS (1)
  - CONVULSION [None]
